FAERS Safety Report 10009002 (Version 2)
Quarter: 2014Q1

REPORT INFORMATION
  Report Type: Spontaneous
  Country: US (occurrence: US)
  Receive Date: 20140313
  Receipt Date: 20140313
  Transmission Date: 20141002
  Serious: No
  Sender: FDA-Public Use
  Company Number: US-INCYTE CORPORATION-2012IN000448

PATIENT
  Age: 52 Year
  Sex: Female

DRUGS (10)
  1. JAKAFI [Suspect]
     Indication: MYELOFIBROSIS
     Dosage: 20 MG, BID
     Route: 048
     Dates: start: 201201, end: 2012
  2. JAKAFI [Suspect]
     Dosage: 15 MG, BID
     Route: 048
     Dates: start: 2012, end: 2012
  3. JAKAFI [Suspect]
     Dosage: 10 MG, BID
     Route: 048
     Dates: start: 2012
  4. SYMBICORT [Concomitant]
     Dosage: 2 PUFFS, BID
  5. METFORMIN [Concomitant]
     Dosage: 1000 MG, BID
  6. FLUOXETINE [Concomitant]
     Dosage: 40 MG, QD
  7. SIMVASTATIN [Concomitant]
     Dosage: 40 MG, QD
  8. HYDROCODONE W/APAP [Concomitant]
     Dosage: UNK, PRN
  9. MVI [Concomitant]
     Dosage: UNK, QD
  10. TYLENOL WITH CODEINE NO.4 [Concomitant]

REACTIONS (5)
  - Fatigue [Unknown]
  - Pain in extremity [Unknown]
  - Increased tendency to bruise [Not Recovered/Not Resolved]
  - Anaemia [Unknown]
  - Platelet count decreased [Unknown]
